FAERS Safety Report 11647110 (Version 1)
Quarter: 2015Q4

REPORT INFORMATION
  Report Type: Spontaneous
  Country: US (occurrence: US)
  Receive Date: 20151021
  Receipt Date: 20151021
  Transmission Date: 20160304
  Serious: No
  Sender: FDA-Public Use
  Company Number: US-AMGEN-USASP2015106189

PATIENT
  Age: 38 Year
  Sex: Female

DRUGS (17)
  1. AMBIEN [Concomitant]
     Active Substance: ZOLPIDEM TARTRATE
     Dosage: UNK
  2. ZOMIG [Concomitant]
     Active Substance: ZOLMITRIPTAN
     Dosage: UNK
  3. BENZONATATE. [Concomitant]
     Active Substance: BENZONATATE
     Dosage: UNK
  4. FLUOCINOLONE [Concomitant]
     Active Substance: FLUOCINOLONE
     Dosage: UNK
  5. OXYCODONE AND ACETAMINOPHEN [Concomitant]
     Active Substance: ACETAMINOPHEN\OXYCODONE\OXYCODONE HYDROCHLORIDE
     Dosage: UNK
  6. SULFAMETHOXAZOLE AND TRIMETHOPRIM DOUBLE STRENGTH [Concomitant]
     Active Substance: SULFAMETHOXAZOLE\TRIMETHOPRIM
     Dosage: UNK
  7. LEXAPRO [Concomitant]
     Active Substance: ESCITALOPRAM OXALATE
     Dosage: UNK
  8. HYDROXYZINE [Concomitant]
     Active Substance: HYDROXYZINE\HYDROXYZINE HYDROCHLORIDE
     Dosage: UNK
  9. ENBREL [Suspect]
     Active Substance: ETANERCEPT
     Indication: PSORIATIC ARTHROPATHY
     Dosage: 50 MG, WEEKLY
     Route: 058
  10. PROTONIX                           /00661201/ [Concomitant]
     Active Substance: OMEPRAZOLE
     Dosage: UNK
  11. TOPAMAX [Concomitant]
     Active Substance: TOPIRAMATE
     Dosage: UNK
  12. MOMETASONE [Concomitant]
     Active Substance: MOMETASONE
     Dosage: UNK
  13. CLONAZEPAM. [Concomitant]
     Active Substance: CLONAZEPAM
     Dosage: UNK
  14. LOMOTIL                            /00384302/ [Concomitant]
     Active Substance: LOPERAMIDE HYDROCHLORIDE
     Dosage: UNK
  15. PROMETHAZINE [Concomitant]
     Active Substance: PROMETHAZINE\PROMETHAZINE HYDROCHLORIDE
     Dosage: UNK
  16. LYRICA [Concomitant]
     Active Substance: PREGABALIN
     Dosage: UNK
  17. IBUPROFEN. [Concomitant]
     Active Substance: IBUPROFEN
     Dosage: UNK

REACTIONS (3)
  - Urine abnormality [Not Recovered/Not Resolved]
  - Dysuria [Not Recovered/Not Resolved]
  - Back pain [Not Recovered/Not Resolved]

NARRATIVE: CASE EVENT DATE: 20151002
